FAERS Safety Report 19583154 (Version 3)
Quarter: 2021Q3

REPORT INFORMATION
  Report Type: Spontaneous
  Country: US (occurrence: US)
  Receive Date: 20210719
  Receipt Date: 20210826
  Transmission Date: 20211014
  Serious: Yes (Hospitalization, Other)
  Sender: FDA-Public Use
  Company Number: US-INSUD PHARMA-2107US00791

PATIENT

DRUGS (2)
  1. TESTOSTERONE. [Suspect]
     Active Substance: TESTOSTERONE
     Indication: TRANSGENDER HORMONAL THERAPY
     Dosage: SINCE AGE 18
     Route: 061
  2. TESTOSTERONE. [Suspect]
     Active Substance: TESTOSTERONE
     Indication: TRANSGENDER HORMONAL THERAPY
     Dosage: FROM AGE 18 TO UNKNOWN (NOT CURRENTLY TAKING)
     Route: 048

REACTIONS (5)
  - Renal artery fibromuscular dysplasia [Recovered/Resolved]
  - Headache [Recovered/Resolved]
  - Renal artery stenosis [Recovered/Resolved]
  - Renovascular hypertension [Recovered/Resolved]
  - Hypertensive emergency [Recovered/Resolved]
